FAERS Safety Report 9249179 (Version 1)
Quarter: 2013Q2

REPORT INFORMATION
  Report Type: Spontaneous
  Country: GB (occurrence: GB)
  Receive Date: 20130423
  Receipt Date: 20130423
  Transmission Date: 20140414
  Serious: Yes (Other)
  Sender: FDA-Public Use
  Company Number: GB-BAXTER-2013BAX014909

PATIENT
  Sex: 0

DRUGS (1)
  1. TISSEEL LYO TWO-COMPONENT FIBRIN SEALANT [Suspect]
     Indication: THORACIC OPERATION
     Route: 061

REACTIONS (1)
  - Air embolism [Unknown]
